FAERS Safety Report 7650057-X (Version None)
Quarter: 2011Q3

REPORT INFORMATION
  Report Type: 
  Country: None (occurrence: None)
  Receive Date: 20110802
  Receipt Date: 20110802
  Transmission Date: 20111222
  Serious: Yes (Other)
  Sender: FDA-Public Use
  Company Number: None

PATIENT
  Age: 45 Year
  Sex: Female
  Weight: 105.23 kg

DRUGS (2)
  1. SEASONIQUE [Suspect]
     Indication: ENDOMETRIOSIS
     Dosage: ONE TABLET
     Route: 048
     Dates: start: 20060301, end: 20110901
  2. SEASONIQUE [Suspect]
     Indication: UTERINE LEIOMYOMA
     Dosage: ONE TABLET
     Route: 048
     Dates: start: 20060301, end: 20110901

REACTIONS (1)
  - CHOLELITHIASIS [None]
